FAERS Safety Report 8989399 (Version 1)
Quarter: 2012Q4

REPORT INFORMATION
  Report Type: Report from Study
  Country: FR (occurrence: FR)
  Receive Date: 20121227
  Receipt Date: 20121227
  Transmission Date: 20130627
  Serious: Yes (Hospitalization)
  Sender: FDA-Public Use
  Company Number: FR-CELGENEUS-056-21880-12122258

PATIENT
  Age: 52 Year
  Sex: Male

DRUGS (9)
  1. REVLIMID [Suspect]
     Indication: MULTIPLE MYELOMA
     Route: 048
     Dates: start: 20120302
  2. REVLIMID [Suspect]
     Route: 048
     Dates: start: 20120330
  3. BORTEZOMIB [Suspect]
     Indication: MULTIPLE MYELOMA
     Route: 065
     Dates: start: 20120302
  4. BORTEZOMIB [Suspect]
     Route: 065
     Dates: start: 20120330
  5. DEXAMETHASONE [Suspect]
     Indication: MULTIPLE MYELOMA
     Route: 065
     Dates: start: 20120302
  6. DEXAMETHASONE [Suspect]
     Route: 065
     Dates: start: 20120330
  7. EDEX [Concomitant]
     Indication: ERECTILE DYSFUNCTION
     Route: 017
  8. ANTITHROMBOTIC AGENTS [Concomitant]
     Indication: THROMBOSIS PROPHYLAXIS
     Route: 065
  9. ANTIINFECTIVES [Concomitant]
     Indication: INFECTION PROPHYLAXIS
     Route: 065

REACTIONS (1)
  - Priapism [Recovered/Resolved with Sequelae]
